FAERS Safety Report 24561851 (Version 2)
Quarter: 2024Q4

REPORT INFORMATION
  Report Type: Spontaneous
  Country: US (occurrence: None)
  Receive Date: 20241029
  Receipt Date: 20241105
  Transmission Date: 20250115
  Serious: Yes (Hospitalization)
  Sender: USAntibiotics
  Company Number: US-USAntibiotics-000351

PATIENT
  Sex: Female
  Weight: 155 kg

DRUGS (3)
  1. AUGMENTIN [Suspect]
     Active Substance: AMOXICILLIN\CLAVULANATE POTASSIUM
     Indication: Animal scratch
  2. LENVIMA [Suspect]
     Active Substance: LENVATINIB
     Indication: Renal cancer
     Dosage: 18 MG DAILY
     Route: 048
     Dates: start: 20240831
  3. EVEROLIMUS [Concomitant]
     Active Substance: EVEROLIMUS
     Indication: Product used for unknown indication

REACTIONS (11)
  - Rash [Recovering/Resolving]
  - Constipation [Recovering/Resolving]
  - Diarrhoea [Recovering/Resolving]
  - Blood urine present [Recovering/Resolving]
  - Feeling abnormal [Recovering/Resolving]
  - Dyspepsia [Recovering/Resolving]
  - Hypertension [Recovering/Resolving]
  - Headache [Recovering/Resolving]
  - Candida infection [Recovering/Resolving]
  - Epistaxis [Recovering/Resolving]
  - Impaired healing [Recovering/Resolving]
